FAERS Safety Report 8228605-0 (Version None)
Quarter: 2012Q1

REPORT INFORMATION
  Report Type: 
  Country: None (occurrence: None)
  Receive Date: 20120322
  Receipt Date: 20110316
  Transmission Date: 20120608
  Serious: No
  Sender: FDA-Public Use
  Company Number: US-BRISTOL-MYERS SQUIBB COMPANY-15612377

PATIENT
  Age: 58 Year
  Sex: Female
  Weight: 57 kg

DRUGS (3)
  1. ERBITUX [Suspect]
     Indication: HEPATIC NEOPLASM MALIGNANT
     Dosage: 4 CYCLE OF ERBITUX WAS GIVEN ON 14 MAR2011
  2. ERBITUX [Suspect]
     Indication: COLON CANCER
     Dosage: 4 CYCLE OF ERBITUX WAS GIVEN ON 14 MAR2011
  3. MORPHINE [Concomitant]

REACTIONS (6)
  - WEIGHT DECREASED [None]
  - RASH [None]
  - NAUSEA [None]
  - DRY SKIN [None]
  - SKIN DISORDER [None]
  - VOMITING [None]
